FAERS Safety Report 9868567 (Version 3)
Quarter: 2014Q2

REPORT INFORMATION
  Report Type: Report from Study
  Country: FR (occurrence: FR)
  Receive Date: 20140204
  Receipt Date: 20140428
  Transmission Date: 20141212
  Serious: Yes (Death, Hospitalization)
  Sender: FDA-Public Use
  Company Number: FR-PFIZER INC-2014031689

PATIENT
  Age: 75 Year
  Sex: Male
  Weight: 50 kg

DRUGS (6)
  1. SUNITINIB MALATE [Suspect]
     Indication: METASTATIC RENAL CELL CARCINOMA
     Dosage: 50 MG, 4 WEEKS ON 2 WEEKS OFF
     Dates: start: 20101025, end: 20110731
  2. SUNITINIB MALATE [Suspect]
     Dosage: 37.5 MG, 4 WEEKS ON 2 WEEKS OFF
     Dates: start: 20120131, end: 20121108
  3. LEVOTHYROX [Concomitant]
     Indication: HYPERTENSION
  4. LOVENOX [Concomitant]
  5. OGASTRO [Concomitant]
  6. OROZAMUDOL [Concomitant]

REACTIONS (15)
  - Disease progression [Fatal]
  - Metastatic renal cell carcinoma [Fatal]
  - General physical health deterioration [Recovered/Resolved]
  - Palmar-plantar erythrodysaesthesia syndrome [Recovered/Resolved]
  - Hypertension [Unknown]
  - Dysgeusia [Unknown]
  - Dyspnoea [Unknown]
  - Anaemia [Unknown]
  - Conjunctivitis [Unknown]
  - Diarrhoea [Unknown]
  - Spinal pain [Unknown]
  - Vertigo [Unknown]
  - Visual impairment [Unknown]
  - Blood thyroid stimulating hormone increased [Unknown]
  - Asthenia [Unknown]
